FAERS Safety Report 6931427-1 (Version None)
Quarter: 2010Q3

REPORT INFORMATION
  Report Type: 
  Country: None (occurrence: None)
  Receive Date: 20100816
  Receipt Date: 20100729
  Transmission Date: 20110219
  Serious: Yes (Hospitalization, Disabling, Other)
  Sender: FDA-Public Use
  Company Number: ACO_01621_2010

PATIENT
  Sex: Female
  Weight: 54.4316 kg

DRUGS (3)
  1. AMPYRA [Suspect]
     Indication: GAIT DISTURBANCE
     Dosage: 10 MG BID ORAL
     Dates: start: 20100728, end: 20100101
  2. BETASERON [Concomitant]
  3. MEDICINE FOR BLOOD PRESSURE [Concomitant]

REACTIONS (3)
  - DISORIENTATION [None]
  - GAIT DISTURBANCE [None]
  - PARALYSIS [None]
